FAERS Safety Report 6870049-8 (Version None)
Quarter: 2010Q3

REPORT INFORMATION
  Report Type: 
  Country: None (occurrence: None)
  Receive Date: 20100722
  Receipt Date: 20100712
  Transmission Date: 20110219
  Serious: Yes (Hospitalization)
  Sender: FDA-Public Use
  Company Number: FR-PFIZER INC-2009265283

PATIENT
  Age: 63 Year
  Weight: 75 kg

DRUGS (1)
  1. SUTENT [Suspect]
     Indication: TRANSITIONAL CELL CARCINOMA
     Dosage: 50 MG, 1X/DAY
     Route: 048
     Dates: start: 20090610, end: 20090714

REACTIONS (1)
  - GENERAL PHYSICAL HEALTH DETERIORATION [None]
